FAERS Safety Report 9016833 (Version 1)
Quarter: 2013Q1

REPORT INFORMATION
  Report Type: Report from Study
  Country: CA (occurrence: CA)
  Receive Date: 20130117
  Receipt Date: 20130117
  Transmission Date: 20140127
  Serious: Yes (Other)
  Sender: FDA-Public Use
  Company Number: CA-JNJFOC-20130103562

PATIENT
  Age: 23 Year
  Sex: Female
  Weight: 87 kg

DRUGS (2)
  1. REMICADE [Suspect]
     Indication: CROHN^S DISEASE
     Route: 042
     Dates: start: 20130103
  2. REMICADE [Suspect]
     Indication: CROHN^S DISEASE
     Route: 042
     Dates: start: 20120731

REACTIONS (8)
  - Dysphagia [Recovering/Resolving]
  - Anxiety [Recovering/Resolving]
  - Infusion related reaction [Unknown]
  - Oropharyngeal pain [Recovering/Resolving]
  - Tearfulness [Unknown]
  - Pruritus [Unknown]
  - Dry throat [Recovering/Resolving]
  - Feeling cold [Unknown]
